FAERS Safety Report 18239689 (Version 7)
Quarter: 2020Q4

REPORT INFORMATION
  Report Type: Spontaneous
  Country: JP (occurrence: JP)
  Receive Date: 20200908
  Receipt Date: 20201123
  Transmission Date: 20210113
  Serious: Yes (Hospitalization)
  Sender: FDA-Public Use
  Company Number: JP-AMGEN-JPNSP2020143098

PATIENT
  Age: 45 Year
  Sex: Male

DRUGS (23)
  1. ZETIA [Concomitant]
     Active Substance: EZETIMIBE
     Dosage: 10 MILLIGRAM, QD AFTER BREAKFAST
     Dates: start: 20200110
  2. FUROSEMIDE. [Concomitant]
     Active Substance: FUROSEMIDE
     Dosage: 10 MILLIGRAM QD AFTER BREAKFAST
  3. DIPYRIDAMOLE. [Concomitant]
     Active Substance: DIPYRIDAMOLE
     Dosage: 25 MILLIGRAM, 2 TABLETS TID AFTER EACH MEAL
  4. FUROSEMIDE. [Concomitant]
     Active Substance: FUROSEMIDE
     Dosage: 10 MILLIGRAM (0.5) QD AFTER BREAKFAST
  5. CARVEDILOL. [Concomitant]
     Active Substance: CARVEDILOL
     Dosage: 10 MILLIGRAM (0.5 MG) BID AFTER BREAKFAST AND DINNER
  6. MITIGLINIDE CALCIUM [Concomitant]
     Active Substance: MITIGLINIDE CALCIUM ANHYDROUS
     Dosage: OD TABLET 5 MILLIGRAM, TID RIGHT BEFORE EACH MEAL
  7. ROSUVASTATIN. [Concomitant]
     Active Substance: ROSUVASTATIN
     Dosage: 2.5 MILLIGRAM, QD AFTER BREAKFAST
     Dates: start: 20200507
  8. REPATHA [Suspect]
     Active Substance: EVOLOCUMAB
     Indication: HYPERCHOLESTEROLAEMIA
     Dosage: 420 MILLIGRAM
     Route: 058
     Dates: start: 20200521, end: 20200618
  9. FUROSEMIDE. [Concomitant]
     Active Substance: FUROSEMIDE
     Dosage: 40 MILLIGRAM, QD AFTER BREAKFAST
  10. CARVEDILOL. [Concomitant]
     Active Substance: CARVEDILOL
     Dosage: 2.5 MILLIGRAM, BID AFTER BREAKFAST AND DINNER
  11. CILNIDIPINE [Concomitant]
     Active Substance: CILNIDIPINE
     Dosage: 10 MILLIGRAM, 2 TABLETS QD AFTER BREAKFAST
  12. ENALAPRIL MALEATE. [Concomitant]
     Active Substance: ENALAPRIL MALEATE
     Dosage: 2.5 MILLIGRAM, QD AFTER BREAKFAST
  13. ARGAMATE [Concomitant]
     Active Substance: CALCIUM POLYSTYRENE SULFONATE
     Dosage: 20% JELLY 25G, TID AFTER EACH MEAL
  14. ATORVASTATIN [Concomitant]
     Active Substance: ATORVASTATIN
     Dosage: 10 MILLIGRAM, QD AFTER BREAKFAST
  15. ROSUVASTATIN. [Concomitant]
     Active Substance: ROSUVASTATIN
     Dosage: 5 MILLIGRAM, QD AFTER BREAKFAST
  16. VALSARTAN. [Concomitant]
     Active Substance: VALSARTAN
     Dosage: 80 MILLIGRAM, QD AFTER BREAKFAST
  17. EZETIMIBE. [Concomitant]
     Active Substance: EZETIMIBE
     Dosage: 10 MILLIGRAM, QD AFTER BREAKFAST
  18. TENELIA [Concomitant]
     Active Substance: TENELIGLIPTIN
     Dosage: 20 MILLIGRAM, QD AFTER BREAKFAST
  19. ATORVASTATIN [Concomitant]
     Active Substance: ATORVASTATIN
     Dosage: 5 MILLIGRAM, QD AFTER BREAKFAST
  20. SAMSCA [Concomitant]
     Active Substance: TOLVAPTAN
     Dosage: 7.5 MILLIGRAM, QD AFTER BREAKFAST
  21. VICTOZA [Concomitant]
     Active Substance: LIRAGLUTIDE
     Dosage: 18 MILLIGRAM, (0.6 MG) QD BEFORE DINNER
     Route: 058
  22. BENIDIPINE HYDROCHLORIDE [Concomitant]
     Active Substance: BENIDIPINE HYDROCHLORIDE
     Dosage: 4 MILLIGRAM, QD AFTER DINNER
  23. FORXIGA [Concomitant]
     Active Substance: DAPAGLIFLOZIN
     Dosage: 5 MILLIGRAM, QD AFTER BREAKFAST

REACTIONS (3)
  - Blood potassium increased [Recovering/Resolving]
  - Blood creatine increased [Recovering/Resolving]
  - Cardiac failure [Recovering/Resolving]

NARRATIVE: CASE EVENT DATE: 20200618
